FAERS Safety Report 4905859-7 (Version None)
Quarter: 2006Q1

REPORT INFORMATION
  Report Type: 
  Country: None (occurrence: None)
  Receive Date: 20060113
  Receipt Date: 20050921
  Transmission Date: 20060701
  Serious: No
  Sender: FDA-Public Use
  Company Number: 2005SP002784

PATIENT
  Age: 48 Year
  Sex: Female
  Weight: 48.9885 kg

DRUGS (2)
  1. LUNESTA [Suspect]
     Indication: INITIAL INSOMNIA
     Dosage: HS; ORAL
     Route: 048
     Dates: start: 20050101
  2. ALTACE [Concomitant]

REACTIONS (1)
  - DYSGEUSIA [None]
